FAERS Safety Report 17811620 (Version 1)
Quarter: 2020Q2

REPORT INFORMATION
  Report Type: Spontaneous
  Country: JP (occurrence: JP)
  Receive Date: 20200521
  Receipt Date: 20200521
  Transmission Date: 20200714
  Serious: Yes (Other)
  Sender: FDA-Public Use
  Company Number: JP-ROCHE-2599224

PATIENT
  Sex: Female

DRUGS (2)
  1. ALECENSA [Suspect]
     Active Substance: ALECTINIB HYDROCHLORIDE
     Indication: LUNG ADENOCARCINOMA
     Route: 048
     Dates: start: 201710
  2. ALECENSA [Suspect]
     Active Substance: ALECTINIB HYDROCHLORIDE
     Route: 048

REACTIONS (11)
  - Pyrexia [Unknown]
  - Musculoskeletal stiffness [Unknown]
  - Back pain [Unknown]
  - Ear pain [Unknown]
  - Tinnitus [Unknown]
  - Arthralgia [Unknown]
  - Malaise [Unknown]
  - Myalgia [Unknown]
  - Oedema peripheral [Unknown]
  - Muscular weakness [Unknown]
  - Paralysis recurrent laryngeal nerve [Unknown]
